FAERS Safety Report 4544854-7 (Version None)
Quarter: 2005Q1

REPORT INFORMATION
  Report Type: 
  Country: None (occurrence: None)
  Receive Date: 20050103
  Receipt Date: 20050103
  Transmission Date: 20050727
  Serious: Yes (Death)
  Sender: FDA-Public Use
  Company Number: None

PATIENT
  Age: 65 Year
  Sex: Female
  Weight: 62.1428 kg

DRUGS (2)
  1. NAPROXEN [Suspect]
     Indication: ARTHRITIS
     Dosage: 1 TABLET    3 TIMES DAILY   ORAL
     Route: 048
     Dates: start: 19910201, end: 19910725
  2. NAPROXEN [Suspect]
     Indication: BURSITIS
     Dosage: 1 TABLET    3 TIMES DAILY   ORAL
     Route: 048
     Dates: start: 19910201, end: 19910725

REACTIONS (2)
  - GASTRIC DISORDER [None]
  - MYOCARDIAL INFARCTION [None]
